FAERS Safety Report 21324821 (Version 1)
Quarter: 2022Q3

REPORT INFORMATION
  Report Type: Spontaneous
  Country: US (occurrence: US)
  Receive Date: 20220912
  Receipt Date: 20220912
  Transmission Date: 20221027
  Serious: Yes (Hospitalization, Other)
  Sender: FDA-Public Use
  Company Number: US-CELGENE-USA-20211106732

PATIENT
  Age: 49 Year
  Sex: Female
  Weight: 232.1 kg

DRUGS (4)
  1. AZACITIDINE [Suspect]
     Active Substance: AZACITIDINE
     Indication: Myelodysplastic syndrome
     Route: 042
     Dates: start: 20211013, end: 20211019
  2. AZACITIDINE [Suspect]
     Active Substance: AZACITIDINE
     Route: 042
     Dates: start: 20211122, end: 20211130
  3. VENETOCLAX [Suspect]
     Active Substance: VENETOCLAX
     Indication: Myelodysplastic syndrome
     Dosage: FREQUENCY TEXT: NOT PROIVDED
     Route: 048
  4. POSACONAZOLE [Concomitant]
     Active Substance: POSACONAZOLE
     Indication: Infection prophylaxis
     Route: 048
     Dates: start: 20210928

REACTIONS (1)
  - Febrile neutropenia [Recovered/Resolved]

NARRATIVE: CASE EVENT DATE: 20211116
